FAERS Safety Report 4717777-8 (Version None)
Quarter: 2005Q3

REPORT INFORMATION
  Report Type: 
  Country: None (occurrence: None)
  Receive Date: 20050718
  Receipt Date: 20050718
  Transmission Date: 20060218
  Serious: Yes (Other)
  Sender: FDA-Public Use
  Company Number: None

PATIENT
  Age: 20 Year
  Sex: Female
  Weight: 73.9363 kg

DRUGS (3)
  1. CITALOPRAM 20MG [Suspect]
     Dosage: 1 PER DAY FOR 1 MONTH ORAL
     Route: 048
     Dates: start: 20050317, end: 20050417
  2. CITALOPRAM 10 MG [Suspect]
     Indication: BLOOD TEST
     Dosage: 1 PER DAY 1 MONTH ORAL
     Route: 048
     Dates: start: 20050417, end: 20050517
  3. EYE DROPS [Concomitant]

REACTIONS (3)
  - CONDITION AGGRAVATED [None]
  - DEPRESSION [None]
  - DRY EYE [None]
